FAERS Safety Report 6497342-5 (Version None)
Quarter: 2009Q4

REPORT INFORMATION
  Report Type: 
  Country: None (occurrence: None)
  Receive Date: 20091215
  Receipt Date: 20091001
  Transmission Date: 20100525
  Serious: No
  Sender: FDA-Public Use
  Company Number: A0809944A

PATIENT
  Age: 64 Year
  Sex: Male

DRUGS (5)
  1. AVODART [Suspect]
     Indication: BENIGN PROSTATIC HYPERPLASIA
     Dosage: .5MG PER DAY
     Route: 048
     Dates: start: 20090901
  2. UROXATRAL [Concomitant]
  3. MICARDIS [Concomitant]
  4. SIMVASTATIN [Concomitant]
  5. CENTRUM SILVER [Concomitant]

REACTIONS (1)
  - POLLAKIURIA [None]
